FAERS Safety Report 19602555 (Version 1)
Quarter: 2021Q3

REPORT INFORMATION
  Report Type: Spontaneous
  Country: CA (occurrence: CA)
  Receive Date: 20210723
  Receipt Date: 20210723
  Transmission Date: 20211014
  Serious: Yes (Death, Hospitalization, Other)
  Sender: FDA-Public Use
  Company Number: CA-SAMSUNG BIOEPIS-SB-2021-17664

PATIENT
  Age: 73 Year
  Sex: Female

DRUGS (5)
  1. METHYLPREDNISOLONE. [Concomitant]
     Active Substance: METHYLPREDNISOLONE
     Indication: PREMEDICATION
     Route: 042
  2. INFLIXIMAB [Suspect]
     Active Substance: INFLIXIMAB
     Indication: CROHN^S DISEASE
     Route: 042
  3. BENADRYL [Concomitant]
     Active Substance: DIPHENHYDRAMINE HYDROCHLORIDE
     Indication: PREMEDICATION
     Route: 048
  4. PREDNISONE. [Concomitant]
     Active Substance: PREDNISONE
     Indication: PRODUCT USED FOR UNKNOWN INDICATION
     Route: 065
  5. TYLENOL [Concomitant]
     Active Substance: ACETAMINOPHEN
     Indication: PREMEDICATION
     Route: 065

REACTIONS (25)
  - Autoimmune myositis [Fatal]
  - Condition aggravated [Fatal]
  - Diabetes mellitus [Fatal]
  - Limb injury [Fatal]
  - Muscle atrophy [Fatal]
  - Malaise [Fatal]
  - Intentional product use issue [Fatal]
  - Death [Fatal]
  - Blood pressure fluctuation [Fatal]
  - Drug level below therapeutic [Fatal]
  - Fall [Fatal]
  - Heart rate decreased [Fatal]
  - Heart rate irregular [Fatal]
  - Nasopharyngitis [Fatal]
  - Off label use [Fatal]
  - Sepsis [Fatal]
  - Weight decreased [Fatal]
  - Faecal calprotectin increased [Fatal]
  - Arthralgia [Fatal]
  - Asthenia [Fatal]
  - Drug specific antibody [Fatal]
  - Pruritus [Fatal]
  - Blood pressure increased [Fatal]
  - Carbohydrate antigen 19-9 increased [Fatal]
  - Pain [Fatal]
